FAERS Safety Report 22680694 (Version 2)
Quarter: 2024Q2

REPORT INFORMATION
  Report Type: Report from Study
  Country: KR (occurrence: KR)
  Receive Date: 20230707
  Receipt Date: 20240418
  Transmission Date: 20240716
  Serious: Yes (Other)
  Sender: FDA-Public Use
  Company Number: KR-MYLANLABS-2023M1068289

PATIENT
  Sex: Male
  Weight: 61.7 kg

DRUGS (33)
  1. CELEBREX [Interacting]
     Active Substance: CELECOXIB
     Indication: Arthritis
     Dosage: UNK
     Route: 048
     Dates: start: 20211015, end: 20211026
  2. ATORVASTATIN [Interacting]
     Active Substance: ATORVASTATIN
     Indication: Hyperlipidaemia
     Dosage: UNK
     Route: 048
     Dates: start: 20210816, end: 20211014
  3. ATORVASTATIN [Interacting]
     Active Substance: ATORVASTATIN
     Dosage: UNK
     Route: 048
     Dates: start: 20211020
  4. PREDNISOLONE [Interacting]
     Active Substance: PREDNISOLONE
     Indication: Arthritis
     Dosage: UNK
     Route: 048
     Dates: start: 20211019, end: 20211024
  5. CEFAZOLIN SODIUM [Suspect]
     Active Substance: CEFAZOLIN SODIUM
     Indication: Arthritis bacterial
     Dosage: UNK
     Route: 042
     Dates: start: 20211019, end: 20211019
  6. CEFAZOLIN SODIUM [Suspect]
     Active Substance: CEFAZOLIN SODIUM
     Dosage: 2 GRAM
     Route: 042
     Dates: start: 20211015, end: 20211018
  7. CEFAZOLIN SODIUM [Suspect]
     Active Substance: CEFAZOLIN SODIUM
     Dosage: 2 GRAM
     Route: 042
     Dates: start: 20211014, end: 20211014
  8. CEFADROXIL [Interacting]
     Active Substance: CEFADROXIL
     Indication: Arthritis
     Dosage: UNK
     Route: 048
     Dates: start: 20211019, end: 20211127
  9. RIVAROXABAN [Concomitant]
     Active Substance: RIVAROXABAN
     Indication: Pulmonary embolism
     Dosage: 20 MILLIGRAM
     Route: 048
     Dates: end: 20211014
  10. RIVAROXABAN [Concomitant]
     Active Substance: RIVAROXABAN
     Dosage: UNK
     Route: 048
     Dates: start: 20211019
  11. ATORVASTATIN CALCIUM ANHYDROUS [Concomitant]
     Active Substance: ATORVASTATIN CALCIUM ANHYDROUS
     Indication: Hyperlipidaemia
     Dosage: 10 MILLIGRAM
     Route: 048
     Dates: end: 20210716
  12. METFORMIN HYDROCHLORIDE [Concomitant]
     Active Substance: METFORMIN HYDROCHLORIDE
     Indication: Diabetes mellitus
     Dosage: 1000 MILLIGRAM
     Route: 048
  13. METFORMIN HYDROCHLORIDE [Concomitant]
     Active Substance: METFORMIN HYDROCHLORIDE
     Dosage: UNK
     Route: 048
     Dates: start: 20211020
  14. ACETAMINOPHEN [Concomitant]
     Active Substance: ACETAMINOPHEN
     Indication: Arthralgia
     Dosage: UNK
     Route: 042
     Dates: start: 20211014, end: 20211014
  15. ACETAMINOPHEN [Concomitant]
     Active Substance: ACETAMINOPHEN
     Dosage: UNK
     Route: 042
     Dates: start: 20211015, end: 20211015
  16. TRAMADOL HYDROCHLORIDE [Concomitant]
     Active Substance: TRAMADOL HYDROCHLORIDE
     Indication: Arthralgia
     Dosage: UNK
     Route: 042
     Dates: start: 20211014, end: 20211014
  17. ACETAMINOPHEN\TRAMADOL HYDROCHLORIDE [Concomitant]
     Active Substance: ACETAMINOPHEN\TRAMADOL HYDROCHLORIDE
     Indication: Arthralgia
     Dosage: UNK
     Route: 048
     Dates: start: 20211015, end: 20211026
  18. PRUCALOPRIDE SUCCINATE [Concomitant]
     Active Substance: PRUCALOPRIDE SUCCINATE
     Indication: Constipation
     Dosage: UNK
     Route: 048
     Dates: start: 20211015, end: 20211018
  19. ATORVASTATIN CALCIUM [Concomitant]
     Active Substance: ATORVASTATIN CALCIUM
     Indication: Hyperlipidaemia
     Dosage: UNK
     Route: 048
     Dates: start: 20211015, end: 20211019
  20. CHLORPHENIRAMINE MALEATE [Concomitant]
     Active Substance: CHLORPHENIRAMINE MALEATE
     Indication: Hypersensitivity
     Dosage: UNK
     Route: 042
     Dates: start: 20211015, end: 20211015
  21. CHLORPHENIRAMINE MALEATE [Concomitant]
     Active Substance: CHLORPHENIRAMINE MALEATE
     Dosage: UNK
     Route: 042
     Dates: start: 20211017, end: 20211017
  22. ACETYLCYSTEINE [Concomitant]
     Active Substance: ACETYLCYSTEINE
     Indication: Hypersensitivity
     Dosage: UNK
     Route: 042
     Dates: start: 20211015, end: 20211015
  23. ACETYLCYSTEINE [Concomitant]
     Active Substance: ACETYLCYSTEINE
     Dosage: UNK
     Route: 042
     Dates: start: 20211017, end: 20211017
  24. HEPARIN SODIUM [Concomitant]
     Active Substance: HEPARIN SODIUM
     Indication: Pulmonary embolism
     Dosage: 3840 INTERNATIONAL UNIT
     Route: 042
     Dates: start: 20211016, end: 20211016
  25. HEPARIN SODIUM [Concomitant]
     Active Substance: HEPARIN SODIUM
     Dosage: 1000 INTERNATIONAL UNIT
     Route: 042
     Dates: start: 20211016, end: 20211016
  26. HEPARIN SODIUM [Concomitant]
     Active Substance: HEPARIN SODIUM
     Dosage: 1100 INTERNATIONAL UNIT
     Route: 042
     Dates: start: 20211016, end: 20211017
  27. HEPARIN SODIUM [Concomitant]
     Active Substance: HEPARIN SODIUM
     Dosage: 1200 INTERNATIONAL UNIT
     Route: 042
     Dates: start: 20211017, end: 20211017
  28. HEPARIN SODIUM [Concomitant]
     Active Substance: HEPARIN SODIUM
     Dosage: 1300 INTERNATIONAL UNIT
     Route: 042
     Dates: start: 20211017, end: 20211017
  29. HEPARIN SODIUM [Concomitant]
     Active Substance: HEPARIN SODIUM
     Dosage: 1500 INTERNATIONAL UNIT
     Route: 042
     Dates: start: 20211017, end: 20211018
  30. HEPARIN SODIUM [Concomitant]
     Active Substance: HEPARIN SODIUM
     Dosage: 1400 INTERNATIONAL UNIT
     Route: 042
     Dates: start: 20211017, end: 20211017
  31. SODIUM CHLORIDE [Concomitant]
     Active Substance: SODIUM CHLORIDE
     Indication: Dizziness
     Dosage: 4 MILLILITER
     Route: 042
     Dates: start: 20211018, end: 20211018
  32. POTASSIUM CHLORIDE [Concomitant]
     Active Substance: POTASSIUM CHLORIDE
     Indication: Diabetes mellitus
     Dosage: 8 MILLILITER
     Route: 042
     Dates: start: 20211018, end: 20211018
  33. METFORMIN HYDROCHLORIDE [Concomitant]
     Active Substance: METFORMIN HYDROCHLORIDE
     Indication: Diabetes mellitus
     Dosage: UNK
     Route: 048
     Dates: start: 20211019, end: 20211019

REACTIONS (10)
  - Arthritis bacterial [Recovered/Resolved]
  - Osteoarthritis [Recovered/Resolved]
  - Pyrexia [Recovered/Resolved]
  - Arthralgia [Recovered/Resolved]
  - Chills [Recovered/Resolved]
  - Dizziness [Recovered/Resolved]
  - Dyspnoea [Recovering/Resolving]
  - Headache [Recovered/Resolved]
  - Hypertension [Recovered/Resolved]
  - Drug interaction [Unknown]
